FAERS Safety Report 8382081-6 (Version None)
Quarter: 2012Q2

REPORT INFORMATION
  Report Type: 
  Country: None (occurrence: None)
  Receive Date: 20120524
  Receipt Date: 20120521
  Transmission Date: 20120825
  Serious: Yes (Other)
  Sender: FDA-Public Use
  Company Number: CA-AMGEN-CANSP2012019219

PATIENT
  Age: 14 Year
  Sex: Female
  Weight: 48.4 kg

DRUGS (11)
  1. VITAMIN B-12 [Concomitant]
     Dosage: UNK
  2. ENBREL [Suspect]
     Dosage: 25 MG, 2 TIMES/WK
     Dates: start: 20080728
  3. SULFASALAZINE [Concomitant]
     Indication: ARTHRITIS
     Dosage: UNK UNK, BID
     Route: 048
  4. PAROXETINE HCL [Concomitant]
     Dosage: UNK
  5. PYRIDOXINE HCL [Concomitant]
     Dosage: UNK
  6. PAXIL [Concomitant]
     Indication: MIGRAINE
     Dosage: UNK UNK, QD
     Route: 048
     Dates: start: 20120201
  7. HUMIRA [Concomitant]
     Dosage: UNK
  8. ENBREL [Suspect]
     Indication: JUVENILE ARTHRITIS
     Dosage: 17.5 MG, 2 TIMES/WK
     Route: 058
     Dates: start: 20080725, end: 20120509
  9. CYPROHEPTADINE HCL [Concomitant]
     Dosage: UNK
  10. FOLIC ACID [Concomitant]
     Dosage: UNK UNK, QD
     Route: 048
  11. FLINTSTONES [Concomitant]
     Dosage: UNK

REACTIONS (10)
  - INJECTION SITE REACTION [None]
  - ORAL PRURITUS [None]
  - DECREASED IMMUNE RESPONSIVENESS [None]
  - NASOPHARYNGITIS [None]
  - INJECTION SITE SWELLING [None]
  - ERYTHEMA NODOSUM [None]
  - CHILLS [None]
  - DRUG HYPERSENSITIVITY [None]
  - INJECTION SITE WARMTH [None]
  - URTICARIA [None]
